FAERS Safety Report 7561032-8 (Version None)
Quarter: 2011Q2

REPORT INFORMATION
  Report Type: 
  Country: None (occurrence: None)
  Receive Date: 20110621
  Receipt Date: 20100712
  Transmission Date: 20111010
  Serious: No
  Sender: FDA-Public Use
  Company Number: US-ASTRAZENECA-2010SE32656

PATIENT
  Sex: Female

DRUGS (2)
  1. ATACAND HCT [Suspect]
     Route: 048
  2. NEXIUM [Suspect]
     Route: 048

REACTIONS (3)
  - HYPERTENSION [None]
  - FEELING ABNORMAL [None]
  - DRUG DOSE OMISSION [None]
